FAERS Safety Report 16151146 (Version 2)
Quarter: 2019Q2

REPORT INFORMATION
  Report Type: Spontaneous
  Country: US (occurrence: US)
  Receive Date: 20190403
  Receipt Date: 20190628
  Transmission Date: 20190711
  Serious: Yes (Life-Threatening, Hospitalization, Other)
  Sender: FDA-Public Use
  Company Number: US-PFIZER INC-2019140749

PATIENT
  Age: 49 Year
  Sex: Female
  Weight: 67 kg

DRUGS (1)
  1. LYRICA [Suspect]
     Active Substance: PREGABALIN
     Indication: COMPLEX REGIONAL PAIN SYNDROME
     Dosage: 100 MG, 3X/DAY
     Route: 048

REACTIONS (16)
  - Angioedema [Unknown]
  - Amnesia [Unknown]
  - Impaired quality of life [Not Recovered/Not Resolved]
  - Drug intolerance [Unknown]
  - Throat tightness [Unknown]
  - Eye disorder [Not Recovered/Not Resolved]
  - Pruritus [Unknown]
  - Tachycardia [Unknown]
  - Product use in unapproved indication [Unknown]
  - Gait disturbance [Recovered/Resolved]
  - Anaphylactic shock [Unknown]
  - Suicidal ideation [Not Recovered/Not Resolved]
  - Drug hypersensitivity [Unknown]
  - Hypertension [Unknown]
  - Depression [Not Recovered/Not Resolved]
  - Respiratory failure [Unknown]

NARRATIVE: CASE EVENT DATE: 20171116
